FAERS Safety Report 9753146 (Version 2)
Quarter: 2013Q4

REPORT INFORMATION
  Report Type: Spontaneous
  Country: US (occurrence: US)
  Receive Date: 20131213
  Receipt Date: 20131213
  Transmission Date: 20140711
  Serious: No
  Sender: FDA-Public Use
  Company Number: US-GILEAD-2010-0026350

PATIENT
  Sex: Male
  Weight: 122.47 kg

DRUGS (22)
  1. LETAIRIS [Suspect]
     Indication: PULMONARY ARTERIAL HYPERTENSION
     Route: 048
     Dates: start: 20090212
  2. LETAIRIS [Suspect]
     Route: 048
  3. ASPIRIN [Concomitant]
  4. PLAVIX [Concomitant]
  5. LASIX [Concomitant]
  6. DEMADEX [Concomitant]
  7. PRINIVIL [Concomitant]
  8. HYTRIN [Concomitant]
  9. ALBUTEROL [Concomitant]
  10. ADVAIR [Concomitant]
  11. SPIRIVA [Concomitant]
  12. KLONOPIN [Concomitant]
  13. DOXEPIN [Concomitant]
  14. PRILOSEC [Concomitant]
  15. XANAX [Concomitant]
  16. OXYMETAZOLINE 0.05% [Concomitant]
  17. LACTULOSE [Concomitant]
  18. OCEAN [Concomitant]
  19. VISTARIL [Concomitant]
  20. TYLENOL [Concomitant]
  21. ULTRAM [Concomitant]
  22. POTASSIUM CHLORIDE [Concomitant]

REACTIONS (4)
  - Memory impairment [Unknown]
  - Local swelling [Unknown]
  - Nasal congestion [Unknown]
  - Constipation [Unknown]
